FAERS Safety Report 5160612-7 (Version None)
Quarter: 2006Q4

REPORT INFORMATION
  Report Type: 
  Country: None (occurrence: None)
  Receive Date: 20061121
  Receipt Date: 20061106
  Transmission Date: 20070319
  Serious: Yes (Hospitalization)
  Sender: FDA-Public Use
  Company Number: 2006BI015611

PATIENT
  Age: 62 Year
  Sex: Male

DRUGS (1)
  1. AVONEX [Suspect]
     Indication: MULTIPLE SCLEROSIS
     Dosage: 30 UG;QW;IM
     Route: 030
     Dates: start: 20030602

REACTIONS (5)
  - CELLULITIS [None]
  - DEHYDRATION [None]
  - INFECTION [None]
  - TRANSIENT ISCHAEMIC ATTACK [None]
  - WHITE BLOOD CELL COUNT INCREASED [None]
